FAERS Safety Report 8806910 (Version 3)
Quarter: 2013Q1

REPORT INFORMATION
  Report Type: Spontaneous
  Country: US (occurrence: US)
  Receive Date: 20120925
  Receipt Date: 20130120
  Transmission Date: 20140127
  Serious: No
  Sender: FDA-Public Use
  Company Number: US-ASTRAZENECA-2012SE60667

PATIENT
  Age: 41 Year
  Sex: Male
  Weight: 83.9 kg

DRUGS (11)
  1. SEROQUEL [Suspect]
     Indication: BIPOLAR DISORDER
     Route: 048
  2. SEROQUEL [Suspect]
     Indication: SOCIAL PHOBIA
     Route: 048
  3. SEROQUEL [Suspect]
     Indication: PANIC DISORDER
     Route: 048
  4. SEROQUEL [Suspect]
     Indication: OBSESSIVE-COMPULSIVE DISORDER
     Route: 048
  5. SEROQUEL [Suspect]
     Indication: BIPOLAR DISORDER
     Dosage: HALF TABLET
     Route: 048
  6. SEROQUEL [Suspect]
     Indication: SOCIAL PHOBIA
     Dosage: HALF TABLET
     Route: 048
  7. SEROQUEL [Suspect]
     Indication: PANIC DISORDER
     Dosage: HALF TABLET
     Route: 048
  8. SEROQUEL [Suspect]
     Indication: OBSESSIVE-COMPULSIVE DISORDER
     Dosage: HALF TABLET
     Route: 048
  9. LITHIUM [Suspect]
     Route: 065
  10. LUVOX [Concomitant]
  11. BETABLOCKER [Concomitant]
     Indication: TREMOR
     Dosage: AS REQUIRED

REACTIONS (9)
  - Anxiety [Not Recovered/Not Resolved]
  - Feeling abnormal [Unknown]
  - Insomnia [Unknown]
  - Feeling abnormal [Unknown]
  - Drug withdrawal syndrome [Unknown]
  - Tremor [Unknown]
  - Intentional drug misuse [Unknown]
  - Off label use [Unknown]
  - Drug dose omission [Unknown]
